FAERS Safety Report 6801553-6 (Version None)
Quarter: 2010Q2

REPORT INFORMATION
  Report Type: 
  Country: None (occurrence: None)
  Receive Date: 20100629
  Receipt Date: 20100611
  Transmission Date: 20101027
  Serious: Yes (Other)
  Sender: FDA-Public Use
  Company Number: KR-SANOFI-AVENTIS-200921811GDDC

PATIENT
  Sex: Male
  Weight: 4.5 kg

DRUGS (5)
  1. INSULIN GLARGINE [Suspect]
     Indication: DIABETIC RELATIVE
     Dosage: DOSE:50 UNIT(S)
     Route: 064
     Dates: start: 20091013
  2. INSULIN GLARGINE [Suspect]
     Dosage: DOSE:40 UNIT(S)
     Route: 063
  3. INSULIN GLULISINE [Suspect]
     Indication: DIABETES MELLITUS
     Dosage: DOSE:20 UNIT(S)
     Route: 064
     Dates: start: 20091013
  4. INSULIN GLULISINE [Suspect]
     Dosage: DOSE:16 UNIT(S)
     Route: 063
  5. ORAL ANTIDIABETICS [Concomitant]

REACTIONS (2)
  - DRUG EXPOSURE DURING PREGNANCY [None]
  - JAUNDICE NEONATAL [None]
